FAERS Safety Report 20130609 (Version 1)
Quarter: 2021Q4

REPORT INFORMATION
  Report Type: Spontaneous
  Country: US (occurrence: None)
  Receive Date: 20211130
  Receipt Date: 20211130
  Transmission Date: 20220303
  Serious: Yes (Hospitalization)
  Sender: FDA-Public Use
  Company Number: None

PATIENT
  Sex: Male

DRUGS (3)
  1. INLYTA [Suspect]
     Active Substance: AXITINIB
     Indication: Renal cancer
     Dosage: FREQUENCY : TWICE A DAY;?TAKE WITH OR WITHOUT FOOD, DOSES AS CLOSE TO 12 HOURS APART AS POSSIBLE
     Route: 048
     Dates: start: 20210804
  2. esomeprazole gra [Concomitant]
  3. LORATADINE [Concomitant]
     Active Substance: LORATADINE

REACTIONS (2)
  - Surgery [None]
  - Therapy interrupted [None]
